FAERS Safety Report 8006147-5 (Version None)
Quarter: 2011Q4

REPORT INFORMATION
  Report Type: 
  Country: None (occurrence: None)
  Receive Date: 20111226
  Receipt Date: 20111213
  Transmission Date: 20120403
  Serious: Yes (Hospitalization)
  Sender: FDA-Public Use
  Company Number: FR-ELI_LILLY_AND_COMPANY-FR201112003170

PATIENT
  Sex: Female

DRUGS (4)
  1. LIBRAX [Concomitant]
     Indication: IRRITABLE BOWEL SYNDROME
     Dosage: 1 DF, TID
     Route: 048
     Dates: start: 20101001, end: 20111001
  2. CARBOSYLANE [Concomitant]
     Indication: DYSPEPSIA
     Dosage: 2 DF, QD
     Route: 048
     Dates: start: 20101001, end: 20111001
  3. CYMBALTA [Suspect]
     Indication: PROCEDURAL PAIN
     Dosage: 60 MG, QD
     Route: 048
     Dates: start: 20101001, end: 20111001
  4. DESOGESTREL AND ETHINYL ESTRADIOL [Concomitant]
     Indication: ORAL CONTRACEPTION
     Dosage: 1 DF, UNK
     Route: 048
     Dates: start: 20101001

REACTIONS (3)
  - OESOPHAGEAL ULCER [None]
  - CHEST PAIN [None]
  - DYSPHAGIA [None]
